FAERS Safety Report 6827803-8 (Version None)
Quarter: 2010Q3

REPORT INFORMATION
  Report Type: 
  Country: None (occurrence: None)
  Receive Date: 20100709
  Receipt Date: 20070126
  Transmission Date: 20110219
  Serious: No
  Sender: FDA-Public Use
  Company Number: US-PFIZER INC-2007008716

PATIENT
  Sex: Female
  Weight: 50.8 kg

DRUGS (4)
  1. CHANTIX [Suspect]
     Indication: SMOKING CESSATION THERAPY
     Dates: start: 20070101
  2. ATENOLOL [Concomitant]
  3. FLEXERIL [Concomitant]
     Indication: PLEURITIC PAIN
  4. MOBIC [Concomitant]
     Indication: PLEURISY

REACTIONS (3)
  - NAUSEA [None]
  - PLEURITIC PAIN [None]
  - VOMITING [None]
